FAERS Safety Report 9218723 (Version 1)
Quarter: 2013Q2

REPORT INFORMATION
  Report Type: Spontaneous
  Country: US (occurrence: None)
  Receive Date: 20130405
  Receipt Date: 20130405
  Transmission Date: 20140414
  Serious: Yes (Other)
  Sender: FDA-Public Use
  Company Number: None

PATIENT
  Age: 30 Year
  Sex: Female
  Weight: 63.5 kg

DRUGS (1)
  1. RANITIDINE [Suspect]
     Indication: PROPHYLAXIS
     Route: 048
     Dates: start: 20130402, end: 20130402

REACTIONS (3)
  - Rash pruritic [None]
  - Rash macular [None]
  - Rash erythematous [None]
